FAERS Safety Report 16676974 (Version 1)
Quarter: 2019Q3

REPORT INFORMATION
  Report Type: Report from Study
  Country: US (occurrence: US)
  Receive Date: 20190807
  Receipt Date: 20190807
  Transmission Date: 20191004
  Serious: Yes (Hospitalization)
  Sender: FDA-Public Use
  Company Number: US-ORION CORPORATION ORION PHARMA-ENTC2018-0375

PATIENT
  Age: 67 Year
  Sex: Female
  Weight: 54.9 kg

DRUGS (17)
  1. MIRTAZAPINE. [Suspect]
     Active Substance: MIRTAZAPINE
     Indication: ANXIETY
     Dosage: STRENGTH: 15 MG
     Route: 065
     Dates: start: 20180112
  2. MIRTAZAPINE. [Suspect]
     Active Substance: MIRTAZAPINE
     Dosage: STRENGTH: 15 MG
     Route: 065
  3. CALCIUM-VITAMIN D [Concomitant]
     Active Substance: CALCIUM\VITAMIN D
     Dosage: STRENGTH: 600 MG
     Route: 065
  4. STALEVO [Interacting]
     Active Substance: CARBIDOPA\ENTACAPONE\LEVODOPA
     Route: 065
     Dates: start: 201807
  5. STALEVO [Suspect]
     Active Substance: CARBIDOPA\ENTACAPONE\LEVODOPA
     Indication: PRODUCT USED FOR UNKNOWN INDICATION
     Dosage: STRENGTH 75MG
     Route: 065
  6. STALEVO [Interacting]
     Active Substance: CARBIDOPA\ENTACAPONE\LEVODOPA
     Route: 065
     Dates: start: 20180523, end: 201807
  7. GOCOVRI [Interacting]
     Active Substance: AMANTADINE
     Dosage: AT BEDTIME
     Route: 048
  8. MELATONIN [Concomitant]
     Active Substance: MELATONIN
     Dosage: STRENGTH: 15 MG
     Route: 065
  9. ZOLEDRONIC ACID [Concomitant]
     Active Substance: ZOLEDRONIC ACID
     Route: 065
  10. RASAGILINE. [Concomitant]
     Active Substance: RASAGILINE
     Dosage: STRENGTH: 1 MG
     Route: 065
  11. GOCOVRI [Interacting]
     Active Substance: AMANTADINE
     Indication: DYSKINESIA
     Dosage: STRENGTH: 137 MG; AT BEDTIME
     Route: 048
     Dates: start: 20180516, end: 20180530
  12. GOCOVRI [Interacting]
     Active Substance: AMANTADINE
     Dosage: AT BEDTIME
     Route: 048
     Dates: start: 20190306
  13. CARBIDOPA/LEVODOPA [Concomitant]
     Active Substance: CARBIDOPA\LEVODOPA
     Dosage: STRENGTH: 50/200 MG
     Route: 065
  14. CARBIDOPA/LEVODOPA [Concomitant]
     Active Substance: CARBIDOPA\LEVODOPA
     Dosage: STRENGTH: 75
     Route: 065
  15. STALEVO [Interacting]
     Active Substance: CARBIDOPA\ENTACAPONE\LEVODOPA
     Route: 065
  16. GOCOVRI [Interacting]
     Active Substance: AMANTADINE
     Dosage: AT BEDTIME
     Route: 048
     Dates: start: 20180531, end: 20181227
  17. MIRTAZAPINE. [Suspect]
     Active Substance: MIRTAZAPINE
     Indication: DEPRESSION
     Dosage: STRENGTH: 15 MG
     Route: 065

REACTIONS (16)
  - Weight decreased [Recovering/Resolving]
  - Fall [Recovered/Resolved]
  - Constipation [Unknown]
  - Hyponatraemic encephalopathy [Unknown]
  - Drug interaction [Unknown]
  - Flatulence [Unknown]
  - Dry mouth [Unknown]
  - Asthenia [Not Recovered/Not Resolved]
  - Hip fracture [Recovered/Resolved]
  - Fatigue [Not Recovered/Not Resolved]
  - Hypotonia [Unknown]
  - Endotracheal intubation [Unknown]
  - Paraesthesia [Not Recovered/Not Resolved]
  - Dizziness postural [Unknown]
  - Cachexia [Recovering/Resolving]
  - Failure to thrive [Recovering/Resolving]

NARRATIVE: CASE EVENT DATE: 2018
